FAERS Safety Report 6125324-1 (Version None)
Quarter: 2009Q1

REPORT INFORMATION
  Report Type: 
  Country: None (occurrence: None)
  Receive Date: 20090320
  Receipt Date: 20090313
  Transmission Date: 20090719
  Serious: Yes (Hospitalization)
  Sender: FDA-Public Use
  Company Number: AU-JNJFOC-20090303217

PATIENT
  Sex: Male

DRUGS (2)
  1. RISPERDAL CONSTA [Suspect]
     Route: 065
  2. RISPERDAL CONSTA [Suspect]
     Indication: DRUG USE FOR UNKNOWN INDICATION
     Route: 065

REACTIONS (8)
  - ANXIETY [None]
  - DIABETES MELLITUS [None]
  - JUDGEMENT IMPAIRED [None]
  - LOSS OF CONTROL OF LEGS [None]
  - MENTAL IMPAIRMENT [None]
  - MUSCLE TIGHTNESS [None]
  - OVERDOSE [None]
  - WEIGHT GAIN POOR [None]
